FAERS Safety Report 13208902 (Version 1)
Quarter: 2017Q1

REPORT INFORMATION
  Report Type: Spontaneous
  Country: US (occurrence: US)
  Receive Date: 20170209
  Receipt Date: 20170209
  Transmission Date: 20170428
  Serious: No
  Sender: FDA-Public Use
  Company Number: US-ROCHE-1740990

PATIENT
  Sex: Female

DRUGS (12)
  1. DOXEPIN [Concomitant]
     Active Substance: DOXEPIN
     Indication: PRURITUS
     Route: 065
  2. TUMS [Concomitant]
     Active Substance: CALCIUM CARBONATE
  3. PREDNISONE. [Concomitant]
     Active Substance: PREDNISONE
     Indication: PRURITUS
  4. ZYRTEC [Concomitant]
     Active Substance: CETIRIZINE HYDROCHLORIDE
     Indication: PRURITUS
     Dosage: AT NIGHT
     Route: 065
  5. LUCENTIS [Suspect]
     Active Substance: RANIBIZUMAB
     Indication: MACULAR DEGENERATION
     Route: 065
  6. PROLIA [Concomitant]
     Active Substance: DENOSUMAB
     Indication: OSTEOPOROSIS
     Route: 065
  7. EYLEA [Concomitant]
     Active Substance: AFLIBERCEPT
     Indication: MACULAR DEGENERATION
  8. HYDROXYZINE [Concomitant]
     Active Substance: HYDROXYZINE HYDROCHLORIDE
     Indication: PRURITUS
     Route: 065
  9. XOLAIR [Suspect]
     Active Substance: OMALIZUMAB
     Indication: URTICARIA CHRONIC
     Route: 065
     Dates: start: 20160405
  10. BEVACIZUMAB [Suspect]
     Active Substance: BEVACIZUMAB
     Indication: MACULAR DEGENERATION
     Route: 065
  11. FELODIPINE. [Concomitant]
     Active Substance: FELODIPINE
     Indication: RAYNAUD^S PHENOMENON
  12. CLARITIN [Concomitant]
     Active Substance: LORATADINE
     Indication: PRURITUS
     Dosage: IN THE MORNING
     Route: 065

REACTIONS (4)
  - Drug ineffective [Unknown]
  - Eye haemorrhage [Unknown]
  - Hypertension [Recovered/Resolved]
  - Off label use [Unknown]
